FAERS Safety Report 17330363 (Version 1)
Quarter: 2020Q1

REPORT INFORMATION
  Report Type: Spontaneous
  Country: US (occurrence: US)
  Receive Date: 20200128
  Receipt Date: 20200128
  Transmission Date: 20200409
  Serious: No
  Sender: FDA-Public Use
  Company Number: US-SA-2020SA014009

PATIENT
  Age: 56 Year
  Sex: Female

DRUGS (2)
  1. DUPIXENT [Suspect]
     Active Substance: DUPILUMAB
     Indication: PRODUCT USED FOR UNKNOWN INDICATION
     Dosage: 300 MG, QOW
     Route: 058
     Dates: start: 20191201
  2. STELARA [Concomitant]
     Active Substance: USTEKINUMAB

REACTIONS (9)
  - Skin haemorrhage [Unknown]
  - Skin exfoliation [Unknown]
  - Condition aggravated [Unknown]
  - Product dose omission [Unknown]
  - Eczema [Unknown]
  - Middle insomnia [Unknown]
  - Skin fissures [Unknown]
  - Pruritus [Unknown]
  - Dry skin [Unknown]

NARRATIVE: CASE EVENT DATE: 202001
